FAERS Safety Report 23789266 (Version 1)
Quarter: 2024Q2

REPORT INFORMATION
  Report Type: Spontaneous
  Country: BE (occurrence: BE)
  Receive Date: 20240426
  Receipt Date: 20240426
  Transmission Date: 20240716
  Serious: Yes (Death, Hospitalization, Other)
  Sender: FDA-Public Use
  Company Number: BE-AMGEN-BELSP2024081117

PATIENT

DRUGS (2)
  1. PROLIA [Suspect]
     Active Substance: DENOSUMAB
     Indication: Osteoporosis
     Dosage: UNK
     Route: 065
  2. ROMOSOZUMAB [Suspect]
     Active Substance: ROMOSOZUMAB
     Indication: Osteoporosis
     Dosage: UNK
     Route: 065

REACTIONS (19)
  - Death [Fatal]
  - Pelvic bone injury [Fatal]
  - Myocardial infarction [Fatal]
  - Peripheral vascular disorder [Fatal]
  - Cerebrovascular accident [Fatal]
  - Transient ischaemic attack [Fatal]
  - Neoplasm [Fatal]
  - Leukaemia [Fatal]
  - Lymphoma [Fatal]
  - Pathological fracture [Fatal]
  - Chronic kidney disease [Fatal]
  - Cognitive disorder [Fatal]
  - Unevaluable event [Unknown]
  - Acetabulum fracture [Unknown]
  - Pelvic fracture [Unknown]
  - Pneumonia [Unknown]
  - Bacterial infection [Unknown]
  - Delirium [Unknown]
  - Fall [Unknown]
